FAERS Safety Report 5388583-9 (Version None)
Quarter: 2007Q3

REPORT INFORMATION
  Report Type: 
  Country: None (occurrence: None)
  Receive Date: 20070716
  Receipt Date: 20070704
  Transmission Date: 20080115
  Serious: Yes (Death, Hospitalization)
  Sender: FDA-Public Use
  Company Number: TR-PFIZER INC-2007054885

PATIENT
  Sex: Male
  Weight: 69 kg

DRUGS (2)
  1. SU-011,248 [Suspect]
     Indication: METASTATIC RENAL CELL CARCINOMA
     Route: 048
     Dates: start: 20070301, end: 20070328
  2. SU-011,248 [Suspect]
     Route: 048
     Dates: start: 20070312, end: 20070510

REACTIONS (4)
  - DISEASE PROGRESSION [None]
  - HYPERCALCAEMIA [None]
  - HYPOTHYROIDISM [None]
  - METASTATIC RENAL CELL CARCINOMA [None]
